FAERS Safety Report 6222084-0 (Version None)
Quarter: 2009Q2

REPORT INFORMATION
  Report Type: 
  Country: None (occurrence: None)
  Receive Date: 20090608
  Receipt Date: 20090608
  Transmission Date: 20091009
  Serious: Yes (Hospitalization, Disabling)
  Sender: FDA-Public Use
  Company Number: None

PATIENT
  Age: 51 Year
  Sex: Male
  Weight: 86.1834 kg

DRUGS (2)
  1. CIPROFLOXACIN [Suspect]
     Indication: PROPHYLAXIS
     Dosage: 500MG TWICE DAILY PO
     Route: 048
     Dates: start: 20081222, end: 20090129
  2. CIPROFLOXACIN [Suspect]
     Indication: PROSTATE INFECTION
     Dosage: 500MG TWICE DAILY PO
     Route: 048
     Dates: start: 20081222, end: 20090129

REACTIONS (2)
  - RETINAL DETACHMENT [None]
  - VITREOUS DETACHMENT [None]
